FAERS Safety Report 10012831 (Version 1)
Quarter: 2014Q1

REPORT INFORMATION
  Report Type: Spontaneous
  Country: CN (occurrence: CN)
  Receive Date: 20140314
  Receipt Date: 20140314
  Transmission Date: 20141002
  Serious: Yes (Other)
  Sender: FDA-Public Use
  Company Number: CN-BRACCO-000779

PATIENT
  Age: 26 Year
  Sex: Female
  Weight: 60 kg

DRUGS (1)
  1. MULTIHANCE [Suspect]
     Indication: NUCLEAR MAGNETIC RESONANCE IMAGING BRAIN
     Route: 042
     Dates: start: 20130913, end: 20130913

REACTIONS (4)
  - Dyspnoea [Recovered/Resolved]
  - Laryngospasm [Recovered/Resolved]
  - Pruritus [Recovered/Resolved]
  - Perineal pain [Recovered/Resolved]
